FAERS Safety Report 18997535 (Version 3)
Quarter: 2021Q2

REPORT INFORMATION
  Report Type: Spontaneous
  Country: PT (occurrence: PT)
  Receive Date: 20210311
  Receipt Date: 20210520
  Transmission Date: 20210717
  Serious: Yes (Hospitalization, Other)
  Sender: FDA-Public Use
  Company Number: NVSC2021PT028500

PATIENT
  Age: 77 Year
  Sex: Female

DRUGS (2)
  1. BEOVU [Suspect]
     Active Substance: BROLUCIZUMAB-DBLL
     Indication: AGE-RELATED MACULAR DEGENERATION
     Dosage: UNK (RIGHT EYE)
     Route: 031
     Dates: start: 202011
  2. BEOVU [Suspect]
     Active Substance: BROLUCIZUMAB-DBLL
     Dosage: UNK (RIGHT EYE)
     Route: 031
     Dates: start: 20210125

REACTIONS (16)
  - Retinal ischaemia [Not Recovered/Not Resolved]
  - Ocular hyperaemia [Unknown]
  - Retinal vasculitis [Recovering/Resolving]
  - Nasal disorder [Unknown]
  - Blindness transient [Recovering/Resolving]
  - Endophthalmitis [Unknown]
  - Retinal vascular occlusion [Recovering/Resolving]
  - Intra-ocular injection complication [Not Recovered/Not Resolved]
  - Eye pain [Unknown]
  - Vitritis [Recovered/Resolved]
  - Retinal haemorrhage [Recovered/Resolved]
  - Angiosclerosis [Not Recovered/Not Resolved]
  - Vitreous floaters [Unknown]
  - Visual impairment [Unknown]
  - Retinal vascular disorder [Unknown]
  - Anterior chamber flare [Unknown]

NARRATIVE: CASE EVENT DATE: 20210127
